FAERS Safety Report 23477118 (Version 1)
Quarter: 2024Q1

REPORT INFORMATION
  Report Type: Report from Study
  Country: US (occurrence: US)
  Receive Date: 20240204
  Receipt Date: 20240204
  Transmission Date: 20240409
  Serious: No
  Sender: FDA-Public Use
  Company Number: US-EXELIXIS-CABO-23065025

PATIENT
  Sex: Male

DRUGS (8)
  1. CABOMETYX [Suspect]
     Active Substance: CABOZANTINIB S-MALATE
     Indication: Neurofibromatosis
     Dosage: 20 MG
  2. ADVIL [Concomitant]
     Active Substance: IBUPROFEN
  3. BUSPIRONE [Concomitant]
     Active Substance: BUSPIRONE HYDROCHLORIDE
  4. PROCHLORPERAZINE [Concomitant]
     Active Substance: PROCHLORPERAZINE
  5. MELATONIN [Concomitant]
     Active Substance: MELATONIN
  6. SILDENAFIL [Concomitant]
     Active Substance: SILDENAFIL
  7. TYLENOL [Concomitant]
     Active Substance: ACETAMINOPHEN
  8. WELLBUTRIN [Concomitant]
     Active Substance: BUPROPION HYDROCHLORIDE

REACTIONS (2)
  - Product dose omission issue [Unknown]
  - Off label use [Unknown]
